FAERS Safety Report 9450595 (Version 1)
Quarter: 2013Q3

REPORT INFORMATION
  Report Type: Spontaneous
  Country: IT (occurrence: IT)
  Receive Date: 20130809
  Receipt Date: 20130809
  Transmission Date: 20140515
  Serious: Yes (Hospitalization)
  Sender: FDA-Public Use
  Company Number: IT-SANOFI-AVENTIS-2013SA078112

PATIENT
  Age: 87 Year
  Sex: Female

DRUGS (6)
  1. FUROSEMIDE [Suspect]
     Indication: ISCHAEMIC CARDIOMYOPATHY
     Route: 048
     Dates: start: 20130101, end: 20130707
  2. TEGRETOL [Suspect]
     Indication: TRIGEMINAL NEURALGIA
     Dosage: STRENGTH: 200 MG TABLET
     Route: 048
     Dates: start: 20130501, end: 20130707
  3. CONGESCOR [Concomitant]
  4. DUOPLAVIN [Concomitant]
  5. CARDIOASPIRIN [Concomitant]
  6. EUTIROX [Concomitant]

REACTIONS (2)
  - Nodal rhythm [Unknown]
  - Syncope [Unknown]
